FAERS Safety Report 21633541 (Version 2)
Quarter: 2023Q1

REPORT INFORMATION
  Report Type: Spontaneous
  Country: US (occurrence: US)
  Receive Date: 20221123
  Receipt Date: 20230213
  Transmission Date: 20230418
  Serious: No
  Sender: FDA-Public Use
  Company Number: US-PFIZER INC-PV202200109171

PATIENT
  Age: 10 Year
  Sex: Female
  Weight: 48.53 kg

DRUGS (1)
  1. EUCRISA [Suspect]
     Active Substance: CRISABOROLE
     Dosage: PUT IT ON HER HAND AT NIGHT
     Route: 061

REACTIONS (1)
  - Disease recurrence [Unknown]
